FAERS Safety Report 20371499 (Version 1)
Quarter: 2022Q1

REPORT INFORMATION
  Report Type: Report from Study
  Country: CA (occurrence: CA)
  Receive Date: 20220124
  Receipt Date: 20220124
  Transmission Date: 20220423
  Serious: Yes (Other)
  Sender: FDA-Public Use
  Company Number: CA-JNJFOC-20220134815

PATIENT
  Sex: Female
  Weight: 77.2 kg

DRUGS (1)
  1. REMICADE [Suspect]
     Active Substance: INFLIXIMAB
     Indication: Psoriatic arthropathy
     Route: 042

REACTIONS (3)
  - Omphalitis [Not Recovered/Not Resolved]
  - Cyst [Recovering/Resolving]
  - Oral herpes [Unknown]
